FAERS Safety Report 8286577-7 (Version None)
Quarter: 2012Q1

REPORT INFORMATION
  Report Type: 
  Country: None (occurrence: None)
  Receive Date: 20120323
  Receipt Date: 20120316
  Transmission Date: 20120608
  Serious: Yes (Other)
  Sender: FDA-Public Use
  Company Number: 2011030615

PATIENT
  Age: 55 Year
  Sex: Female
  Weight: 76.2043 kg

DRUGS (37)
  1. HIZENTRA [Suspect]
     Indication: IMMUNODEFICIENCY COMMON VARIABLE
     Dates: start: 20110307
  2. FUROSEMIDE [Concomitant]
  3. LEVEMIR [Concomitant]
  4. CITRACAL (CALCIUM CITRATE) [Concomitant]
  5. HIZENTRA [Suspect]
     Indication: IMMUNODEFICIENCY COMMON VARIABLE
     Dosage: 11 G 1X/WEEK, 55 ML EVERY WEEK ON THREE TO FOUR SITES OVER 1.5 HOURS SUBCUTANEOUS
     Route: 058
     Dates: start: 20111129, end: 20111129
  6. HIZENTRA [Suspect]
     Indication: IMMUNODEFICIENCY COMMON VARIABLE
  7. ALLEGRA [Concomitant]
  8. NAPROXEN [Concomitant]
  9. CALAN [Concomitant]
  10. NOVOLOG [Concomitant]
  11. FERROUS SULFATE TAB [Concomitant]
  12. VITAMIN D [Concomitant]
  13. COLCRYS [Concomitant]
  14. NEXIUM [Concomitant]
  15. MIRAPEX [Concomitant]
  16. HIZENTRA [Suspect]
     Indication: IMMUNODEFICIENCY COMMON VARIABLE
     Dosage: SUBCUTANEOUS
     Route: 058
  17. HIZENTRA [Suspect]
     Indication: IMMUNODEFICIENCY COMMON VARIABLE
     Dosage: 11 G 1X/WEEK, (55 ML) 3-4 SITES OVER 1.5 HOURS SUBCUTANEOUS
     Route: 058
     Dates: start: 20120315
  18. ZITHROMAX [Concomitant]
  19. SYNTHROID [Concomitant]
  20. FEMHFT (NORETHISTERONE) [Concomitant]
  21. FLEXERIL [Concomitant]
  22. ACETAMINOPHEN [Concomitant]
  23. HIZENTRA [Suspect]
     Indication: IMMUNODEFICIENCY COMMON VARIABLE
     Dosage: SUBCUTANEOUS
     Route: 058
  24. HIZENTRA [Suspect]
     Indication: IMMUNODEFICIENCY COMMON VARIABLE
     Dosage: SUBCUTANEOUS
     Route: 058
  25. TRAMADOL HCL [Concomitant]
  26. METOLAZONE [Concomitant]
  27. LISINOPRIL [Concomitant]
  28. MULTIVITAMIN (DAILY MULTIVITAMIN) [Concomitant]
  29. POTASSIUM CHLORIDE [Concomitant]
  30. HIZENTRA [Suspect]
     Indication: IMMUNODEFICIENCY COMMON VARIABLE
     Dosage: SUBCUTANEOUS
     Route: 058
  31. HIZENTRA [Suspect]
     Indication: IMMUNODEFICIENCY COMMON VARIABLE
     Dosage: SUBCUTANEOUS
     Route: 058
  32. PRANDIN (DEFLAZACORT) [Concomitant]
  33. PSEUDOEPHEDRINE HCL [Concomitant]
  34. HIZENTRA [Suspect]
     Indication: IMMUNODEFICIENCY COMMON VARIABLE
     Dosage: SUBCUTANEOUS
     Route: 058
  35. SINGULAIR [Concomitant]
  36. TERAZOSIN HCL [Concomitant]
  37. ADVAIR HFA [Concomitant]

REACTIONS (9)
  - LACERATION [None]
  - STAPHYLOCOCCAL INFECTION [None]
  - INJECTION SITE HAEMATOMA [None]
  - SINUSITIS [None]
  - OEDEMA PERIPHERAL [None]
  - GOUT [None]
  - CONDITION AGGRAVATED [None]
  - INJECTION SITE ERYTHEMA [None]
  - INFECTION [None]
